FAERS Safety Report 10949295 (Version 2)
Quarter: 2015Q2

REPORT INFORMATION
  Report Type: Spontaneous
  Country: ES (occurrence: None)
  Receive Date: 20150320
  Receipt Date: 20150406
  Transmission Date: 20150821
  Serious: Yes (Other)
  Sender: FDA-Public Use
  Company Number: ES2015GSK032181

PATIENT
  Age: 45 Year
  Sex: Female

DRUGS (2)
  1. EFAVIRENZ (EFAVIRENZ) [Concomitant]
     Active Substance: EFAVIRENZ
  2. KIVEXA [Suspect]
     Active Substance: ABACAVIR SULFATE\LAMIVUDINE
     Indication: HIV INFECTION
     Route: 048
     Dates: start: 20140813

REACTIONS (1)
  - Angina pectoris [None]
